FAERS Safety Report 8131071-7 (Version None)
Quarter: 2012Q1

REPORT INFORMATION
  Report Type: 
  Country: None (occurrence: None)
  Receive Date: 20120209
  Receipt Date: 20120209
  Transmission Date: 20120608
  Serious: Yes (Life-Threatening, Disabling)
  Sender: FDA-Public Use
  Company Number: None

PATIENT
  Age: 85 Year
  Sex: Female

DRUGS (2)
  1. TIAZAC [Suspect]
     Indication: BLOOD POTASSIUM INCREASED
     Dosage: 160 MG 1 PER DAY ORAL
     Route: 048
     Dates: start: 20030306, end: 20030317
  2. TIAZAC [Suspect]
     Indication: HEART RATE IRREGULAR
     Dosage: 160 MG 1 PER DAY ORAL
     Route: 048
     Dates: start: 20030306, end: 20030317

REACTIONS (4)
  - CARDIAC FAILURE CONGESTIVE [None]
  - CARDIAC VALVE DISEASE [None]
  - HEART RATE DECREASED [None]
  - CARDIAC DISORDER [None]
